FAERS Safety Report 16719795 (Version 2)
Quarter: 2019Q3

REPORT INFORMATION
  Report Type: Spontaneous
  Country: GB (occurrence: GB)
  Receive Date: 20190820
  Receipt Date: 20190826
  Transmission Date: 20191005
  Serious: Yes (Hospitalization, Other)
  Sender: FDA-Public Use
  Company Number: GB-DRREDDYS-USA/UKI/19/0113320

PATIENT
  Age: 15 Year
  Sex: Male

DRUGS (4)
  1. ZOLEDRONIC ACID [Suspect]
     Active Substance: ZOLEDRONIC ACID
     Indication: SPINAL FRACTURE
     Route: 065
  2. VITAMIN D [Concomitant]
     Active Substance: VITAMIN D NOS
     Indication: PROPHYLAXIS
     Dosage: VITAMIN D SUPPLEMENTATION
  3. DEFLAZACORT [Concomitant]
     Active Substance: DEFLAZACORT
     Indication: DUCHENNE MUSCULAR DYSTROPHY
  4. CALCIUM [Concomitant]
     Active Substance: CALCIUM
     Indication: PROPHYLAXIS
     Dosage: CALCIUM SUPPLEMENTATION AS PER HOSPITAL PROTOCOL

REACTIONS (3)
  - Renal impairment [Recovered/Resolved]
  - Myoglobinuria [Recovered/Resolved]
  - Rhabdomyolysis [Recovered/Resolved]
